FAERS Safety Report 15929404 (Version 2)
Quarter: 2019Q1

REPORT INFORMATION
  Report Type: Report from Study
  Country: US (occurrence: US)
  Receive Date: 20190206
  Receipt Date: 20190228
  Transmission Date: 20190417
  Serious: Yes (Hospitalization)
  Sender: FDA-Public Use
  Company Number: US-ACTELION-A-NJ2018-167706

PATIENT
  Age: 42 Year
  Sex: Female

DRUGS (30)
  1. FAMOTIDINE. [Concomitant]
     Active Substance: FAMOTIDINE
     Dosage: 10 MG, ONCE
     Dates: start: 20190110, end: 20190110
  2. HEPARIN [Concomitant]
     Active Substance: HEPARIN SODIUM
     Dosage: UNK
     Dates: start: 20190110, end: 20190115
  3. PREDNISONE. [Concomitant]
     Active Substance: PREDNISONE
     Dosage: 14 MG, QD
     Dates: start: 20190108, end: 20190109
  4. OPSUMIT [Suspect]
     Active Substance: MACITENTAN
     Indication: PULMONARY HYPERTENSION
     Dosage: 10 MG, UNK
     Route: 048
     Dates: start: 20160914, end: 201901
  5. ACETAMINOPHEN. [Suspect]
     Active Substance: ACETAMINOPHEN
     Indication: HEADACHE
     Dosage: 325 MG, ONCE
     Route: 048
     Dates: start: 20190109, end: 20190109
  6. FLOLAN [Concomitant]
     Active Substance: EPOPROSTENOL SODIUM
     Dosage: 22 NG/KG, PER MIN
     Dates: start: 20190109, end: 20190119
  7. POTASSIUM BICARBONATE. [Concomitant]
     Active Substance: POTASSIUM BICARBONATE
     Dosage: 20 MEQ, Q2H X 2DOSES
     Dates: start: 20190109, end: 20190109
  8. SILDENAFIL. [Concomitant]
     Active Substance: SILDENAFIL
     Dosage: 20 MG, TID
     Dates: start: 20190107, end: 20190119
  9. ACETAMINOPHEN. [Suspect]
     Active Substance: ACETAMINOPHEN
     Dosage: 650 MG, ONCE
     Route: 048
     Dates: start: 20190111, end: 20190111
  10. VANCOMYCIN [Suspect]
     Active Substance: VANCOMYCIN
     Indication: PNEUMONIA
     Dosage: 1250 MG, Q12HRS
     Route: 042
     Dates: start: 20190108, end: 20190110
  11. DIGOXIN. [Concomitant]
     Active Substance: DIGOXIN
     Dosage: 250 MCG, QD
     Dates: start: 20190108, end: 20190119
  12. PREDNISONE. [Concomitant]
     Active Substance: PREDNISONE
     Dosage: 7 MG, QD
     Dates: start: 20190110, end: 20190119
  13. OPSUMIT [Suspect]
     Active Substance: MACITENTAN
     Dosage: UNK
     Route: 048
  14. AZITHROMYCIN ANHYDROUS. [Concomitant]
     Active Substance: AZITHROMYCIN ANHYDROUS
  15. CEFTAROLINE [Concomitant]
     Active Substance: CEFTAROLINE
  16. DAPTOMYCIN. [Concomitant]
     Active Substance: DAPTOMYCIN
     Dosage: 500 MG, Q24H
     Dates: start: 20190112, end: 20190119
  17. PHYTONADIONE. [Concomitant]
     Active Substance: PHYTONADIONE
     Dosage: 5 MG, ONCE
     Dates: start: 20190109, end: 20190109
  18. POTASSIUM CHLORIDE. [Concomitant]
     Active Substance: POTASSIUM CHLORIDE
     Dosage: 20 MEQ, QD
     Dates: start: 20190109, end: 20190119
  19. MYCOPHENOLATE [Suspect]
     Active Substance: MYCOPHENOLIC ACID
     Indication: SYSTEMIC LUPUS ERYTHEMATOSUS
     Dosage: 100 MG, BID
     Route: 048
     Dates: start: 20190107, end: 20190109
  20. HYDROCORTISONE. [Concomitant]
     Active Substance: HYDROCORTISONE
     Dosage: 100 MG, ONCE
     Dates: start: 20190107, end: 20190107
  21. ZOFRAN [Concomitant]
     Active Substance: ONDANSETRON HYDROCHLORIDE
     Dosage: 4 MG, ONCE
     Dates: start: 20190110, end: 20190110
  22. CEFTRIAXONE. [Concomitant]
     Active Substance: CEFTRIAXONE
  23. DIPHENHYDRAMINE. [Concomitant]
     Active Substance: DIPHENHYDRAMINE
  24. OMEPRAZOLE. [Concomitant]
     Active Substance: OMEPRAZOLE
     Dosage: 20 MG, BID
     Dates: start: 20190107, end: 20190112
  25. OMEPRAZOLE. [Concomitant]
     Active Substance: OMEPRAZOLE
     Dosage: 40 MG, BID
     Dates: start: 20190113, end: 20190119
  26. FLEXERIL [Suspect]
     Active Substance: CYCLOBENZAPRINE HYDROCHLORIDE
     Indication: MUSCLE SPASMS
     Dosage: 10 MG, TID
     Route: 048
     Dates: start: 20190111, end: 20190112
  27. BUMEX [Concomitant]
     Active Substance: BUMETANIDE
  28. WARFARIN [Concomitant]
     Active Substance: WARFARIN
     Dosage: 20 MG, ONCE
     Dates: start: 20190107, end: 20190107
  29. HYDROXYCHLOROQUINE [Concomitant]
     Active Substance: HYDROXYCHLOROQUINE
     Dosage: 200 MG, BID
     Dates: start: 20190110, end: 20190119
  30. ZOFRAN [Concomitant]
     Active Substance: ONDANSETRON HYDROCHLORIDE
     Dosage: 4 MG, ONCE
     Dates: start: 20190108, end: 20190108

REACTIONS (22)
  - Transaminases increased [Recovered/Resolved]
  - Aspartate aminotransferase increased [Recovered/Resolved]
  - Abdominal pain [Recovered/Resolved]
  - Abdominal pain upper [Unknown]
  - Weight increased [Unknown]
  - Blood bilirubin increased [Recovered/Resolved]
  - Respiratory failure [Recovered/Resolved]
  - Blood alkaline phosphatase increased [Recovering/Resolving]
  - Pain [Unknown]
  - Emergency care [Unknown]
  - Hyperbilirubinaemia [Recovered/Resolved]
  - Pneumonia [Unknown]
  - Influenza [Recovered/Resolved]
  - Oedema peripheral [Unknown]
  - Red man syndrome [Unknown]
  - Alanine aminotransferase increased [Recovered/Resolved]
  - Pyrexia [Unknown]
  - Cholelithiasis [Unknown]
  - Hepatotoxicity [Recovering/Resolving]
  - Hepatosplenomegaly [Unknown]
  - Pleural effusion [Recovering/Resolving]
  - Sepsis [Unknown]

NARRATIVE: CASE EVENT DATE: 20180205
